FAERS Safety Report 9282966 (Version 4)
Quarter: 2015Q4

REPORT INFORMATION
  Report Type: Spontaneous
  Country: US (occurrence: US)
  Receive Date: 20130510
  Receipt Date: 20151008
  Transmission Date: 20160305
  Serious: No
  Sender: FDA-Public Use
  Company Number: US-GLAXOSMITHKLINE-A0904104A

PATIENT
  Age: 80 Year
  Sex: Female

DRUGS (12)
  1. TYKERB [Suspect]
     Active Substance: LAPATINIB DITOSYLATE
     Dosage: 500 MG, QD
     Dates: start: 20070516
  2. ACIPHEX [Concomitant]
     Active Substance: RABEPRAZOLE SODIUM
  3. HERCEPTIN [Concomitant]
     Active Substance: TRASTUZUMAB
  4. XANAX [Concomitant]
     Active Substance: ALPRAZOLAM
  5. LUCENTIS [Concomitant]
     Active Substance: RANIBIZUMAB
  6. TYKERB [Suspect]
     Active Substance: LAPATINIB DITOSYLATE
     Indication: BREAST CANCER
     Dosage: 5 UNK, 1D
     Route: 048
     Dates: start: 200704
  7. QUININE [Concomitant]
     Active Substance: QUININE
  8. VITAMIN B12 [Concomitant]
     Active Substance: CYANOCOBALAMIN
  9. NAVELBINE [Concomitant]
     Active Substance: VINORELBINE TARTRATE
  10. BIOTIN [Concomitant]
     Active Substance: BIOTIN
  11. MELATONIN [Concomitant]
     Active Substance: MELATONIN
  12. ASPIRIN. [Concomitant]
     Active Substance: ASPIRIN

REACTIONS (4)
  - Abdominal pain upper [Unknown]
  - Onychoclasis [Unknown]
  - Muscle spasms [Not Recovered/Not Resolved]
  - Drug dose omission [Unknown]

NARRATIVE: CASE EVENT DATE: 200906
